FAERS Safety Report 7807036-9 (Version None)
Quarter: 2011Q4

REPORT INFORMATION
  Report Type: 
  Country: None (occurrence: None)
  Receive Date: 20111011
  Receipt Date: 20110927
  Transmission Date: 20120403
  Serious: Yes (Hospitalization)
  Sender: FDA-Public Use
  Company Number: GB-JNJFOC-20111003500

PATIENT
  Age: 21 Year
  Sex: Female

DRUGS (7)
  1. METOCLOPRAMIDE [Suspect]
     Indication: PRODUCT USED FOR UNKNOWN INDICATION
     Dosage: 3 TIMES A DAY
     Route: 065
  2. IBUPROFEN [Concomitant]
     Route: 065
  3. ULTRAM ER [Suspect]
     Dosage: 3 DOSES A DAY
     Route: 065
  4. SUMATRIPTAN SUCCINATE [Concomitant]
     Route: 065
  5. OMEPRAZOLE [Concomitant]
     Route: 065
  6. CYCLIZINE [Concomitant]
     Route: 065
  7. ULTRAM ER [Suspect]
     Indication: ABDOMINAL PAIN
     Dosage: ONCE A DAY
     Route: 065

REACTIONS (2)
  - ADRENAL INSUFFICIENCY [None]
  - PITUITARY TUMOUR BENIGN [None]
